FAERS Safety Report 18179283 (Version 1)
Quarter: 2020Q3

REPORT INFORMATION
  Report Type: Spontaneous
  Country: US (occurrence: US)
  Receive Date: 20200820
  Receipt Date: 20200820
  Transmission Date: 20201103
  Serious: Yes (Other)
  Sender: FDA-Public Use
  Company Number: US-ALKERMES INC.-ALK-2020-003400

PATIENT
  Age: 39 Year
  Sex: Male

DRUGS (2)
  1. VIVITROL [Suspect]
     Active Substance: NALTREXONE
     Indication: ALCOHOLISM
     Dosage: 380 MILLIGRAM, QMO
     Dates: start: 20200812
  2. VIVITROL [Suspect]
     Active Substance: NALTREXONE
     Dosage: 380 MILLIGRAM, QMO
     Dates: start: 20200713, end: 20200713

REACTIONS (4)
  - Injection site swelling [Recovering/Resolving]
  - Injection site pain [Recovering/Resolving]
  - Injection site reaction [Recovering/Resolving]
  - Injection site extravasation [Recovering/Resolving]

NARRATIVE: CASE EVENT DATE: 20200812
